FAERS Safety Report 6808649-3 (Version None)
Quarter: 2010Q2

REPORT INFORMATION
  Report Type: 
  Country: None (occurrence: None)
  Receive Date: 20100629
  Receipt Date: 20090911
  Transmission Date: 20101027
  Serious: No
  Sender: FDA-Public Use
  Company Number: US-PFIZER INC-2009224834

PATIENT
  Sex: Female

DRUGS (8)
  1. TIKOSYN [Suspect]
     Dosage: UNK
  2. SPIRONOLACTONE [Suspect]
     Dosage: UNK
  3. NEXIUM [Suspect]
     Dosage: UNK
  4. AMIODARONE [Suspect]
     Dosage: UNK
  5. CARVEDILOL [Suspect]
     Dosage: UNK
  6. WARFARIN [Concomitant]
  7. VYTORIN [Concomitant]
  8. ALISKIREN [Concomitant]

REACTIONS (1)
  - MUSCLE SPASMS [None]
